FAERS Safety Report 18706924 (Version 2)
Quarter: 2021Q1

REPORT INFORMATION
  Report Type: Spontaneous
  Country: CN (occurrence: CN)
  Receive Date: 20210106
  Receipt Date: 20210108
  Transmission Date: 20210419
  Serious: Yes (Other)
  Sender: FDA-Public Use
  Company Number: CN-ELI_LILLY_AND_COMPANY-CN202101000615

PATIENT
  Age: 39 Year
  Sex: Female

DRUGS (2)
  1. TAXOTERE [Concomitant]
     Active Substance: DOCETAXEL
     Indication: SARCOMA UTERUS
     Dosage: 120 MG, UNKNOWN
     Route: 041
     Dates: start: 20200910
  2. GEMZAR [Suspect]
     Active Substance: GEMCITABINE HYDROCHLORIDE
     Indication: SARCOMA UTERUS
     Dosage: 1500 MG, DAILY
     Route: 041
     Dates: start: 20200910, end: 20201214

REACTIONS (3)
  - Myelosuppression [Recovering/Resolving]
  - Off label use [Unknown]
  - Liver injury [Recovering/Resolving]

NARRATIVE: CASE EVENT DATE: 20200910
